FAERS Safety Report 24877667 (Version 1)
Quarter: 2025Q1

REPORT INFORMATION
  Report Type: Spontaneous
  Country: US (occurrence: US)
  Receive Date: 20250123
  Receipt Date: 20250123
  Transmission Date: 20250408
  Serious: No
  Sender: GLAXOSMITHKLINE
  Company Number: US-GSKCCFUS-Case-02193096_AE-120568

PATIENT
  Sex: Female

DRUGS (3)
  1. NUCALA [Suspect]
     Active Substance: MEPOLIZUMAB
     Indication: Asthma
  2. NUCALA [Suspect]
     Active Substance: MEPOLIZUMAB
     Indication: Anosmia
  3. NUCALA [Suspect]
     Active Substance: MEPOLIZUMAB
     Indication: Ageusia

REACTIONS (3)
  - Nasal congestion [Unknown]
  - Off label use [Unknown]
  - Drug ineffective for unapproved indication [Unknown]
